FAERS Safety Report 7264703-6 (Version None)
Quarter: 2011Q1

REPORT INFORMATION
  Report Type: 
  Country: None (occurrence: None)
  Receive Date: 20110131
  Receipt Date: 20110124
  Transmission Date: 20110831
  Serious: Yes (Hospitalization)
  Sender: FDA-Public Use
  Company Number: FR-PFIZER INC-2010072129

PATIENT
  Age: 87 Year
  Sex: Female

DRUGS (16)
  1. DALACINE [Suspect]
     Dosage: 600 MG, 3X/DAY
     Route: 048
     Dates: start: 20100415
  2. SECTRAL [Concomitant]
     Dosage: 400 MG, 1X/DAY
  3. MONICOR [Concomitant]
     Dosage: 40 MG, 1X/DAY
  4. COZAAR [Concomitant]
     Dosage: 50 MG, 1X/DAY
  5. FUROSEMIDE [Concomitant]
     Dosage: 40 MG, 1X/DAY
  6. TRANSIPEG [Concomitant]
     Dosage: 2 DF PER DAY
     Route: 048
  7. GAVISCON [Concomitant]
     Dosage: 3 DF PER DAY
  8. LIPUR [Concomitant]
     Dosage: 450 MG
  9. MOPRAL [Concomitant]
     Dosage: 40 MG, 1X/DAY
  10. DOLIPRANE [Concomitant]
     Dosage: 6 DF PER DAY
  11. OXYCONTIN [Concomitant]
     Dosage: 2 DF PER DAY
  12. TARDYFERON [Concomitant]
     Dosage: 2 DF PER DAY
  13. RIFADIN [Suspect]
     Dosage: 600 MG, 3X/DAY
     Route: 048
     Dates: start: 20100415, end: 20100430
  14. DIFFU K [Concomitant]
     Dosage: UNK
  15. SIFROL [Concomitant]
     Dosage: 1.5 DF PER DAY
  16. HYPERIUM [Concomitant]
     Dosage: 1 DF, 1X/DAY

REACTIONS (7)
  - NAUSEA [None]
  - RASH MORBILLIFORM [None]
  - PRURITUS [None]
  - RASH MACULAR [None]
  - VOMITING [None]
  - OEDEMA PERIPHERAL [None]
  - FACE OEDEMA [None]
